FAERS Safety Report 18423660 (Version 6)
Quarter: 2021Q3

REPORT INFORMATION
  Report Type: Other
  Country: DE (occurrence: DE)
  Receive Date: 20201024
  Receipt Date: 20210728
  Transmission Date: 20211014
  Serious: Yes (Hospitalization)
  Sender: FDA-Public Use
  Company Number: DE-ROCHE-2699943

PATIENT
  Age: 46 Year
  Sex: Female
  Weight: 90 kg

DRUGS (6)
  1. OCRELIZUMAB. [Suspect]
     Active Substance: OCRELIZUMAB
     Route: 042
     Dates: start: 20200811
  2. OCRELIZUMAB. [Suspect]
     Active Substance: OCRELIZUMAB
     Route: 042
     Dates: start: 20191209
  3. OCRELIZUMAB. [Suspect]
     Active Substance: OCRELIZUMAB
     Indication: RELAPSING MULTIPLE SCLEROSIS
     Route: 042
     Dates: start: 20190521, end: 20190604
  4. PREGABADOR [Concomitant]
     Active Substance: PREGABALIN
     Indication: ANXIETY
     Dosage: 50?50?200, START MORE THAN 5 YEARS AGO
     Route: 048
  5. PREGABADOR [Concomitant]
     Active Substance: PREGABALIN
     Indication: NEURALGIA
     Dosage: 50?50?200, START MORE THAN 5 YEARS AGO
     Route: 048
     Dates: start: 201601
  6. VENLAFAXIN [Concomitant]
     Active Substance: VENLAFAXINE HYDROCHLORIDE
     Indication: DEPRESSION
     Dosage: START MORE THAN 5 YEARS AGO
     Route: 048
     Dates: start: 201501

REACTIONS (5)
  - Blood immunoglobulin G decreased [Unknown]
  - Blood immunoglobulin A decreased [Not Recovered/Not Resolved]
  - Blood immunoglobulin G decreased [Not Recovered/Not Resolved]
  - Depression suicidal [Recovered/Resolved]
  - Blood immunoglobulin M decreased [Unknown]

NARRATIVE: CASE EVENT DATE: 20200803
